FAERS Safety Report 15818193 (Version 1)
Quarter: 2019Q1

REPORT INFORMATION
  Report Type: Spontaneous
  Country: US (occurrence: US)
  Receive Date: 20190113
  Receipt Date: 20190113
  Transmission Date: 20190417
  Serious: No
  Sender: FDA-Public Use
  Company Number: US-COOPERSURGICAL, INC.-US-2018CPS019316

PATIENT
  Age: 52 Year
  Sex: Female

DRUGS (2)
  1. MULTIVITAMIN [Concomitant]
     Active Substance: VITAMINS
  2. PARAGARD T 380A [Suspect]
     Active Substance: COPPER
     Indication: CONTRACEPTION

REACTIONS (5)
  - Menstruation irregular [Unknown]
  - Vaginal haemorrhage [Unknown]
  - Complication associated with device [Unknown]
  - Device expulsion [Recovered/Resolved]
  - Device breakage [Not Recovered/Not Resolved]
